FAERS Safety Report 9885857 (Version 2)
Quarter: 2014Q1

REPORT INFORMATION
  Report Type: Spontaneous
  Country: GB (occurrence: GB)
  Receive Date: 20140210
  Receipt Date: 20140224
  Transmission Date: 20141002
  Serious: Yes (Other)
  Sender: FDA-Public Use
  Company Number: GB-PFIZER INC-2014034023

PATIENT
  Sex: Male

DRUGS (2)
  1. LUSTRAL [Suspect]
     Dosage: 150 MG, UNK
     Route: 065
  2. MIRTAZAPINE [Suspect]
     Dosage: 45 MG, DAILY
     Route: 065

REACTIONS (1)
  - Gastric disorder [Unknown]
